FAERS Safety Report 6107411-7 (Version None)
Quarter: 2009Q1

REPORT INFORMATION
  Report Type: 
  Country: None (occurrence: None)
  Receive Date: 20090227
  Receipt Date: 20080604
  Transmission Date: 20090719
  Serious: Yes (Other)
  Sender: FDA-Public Use
  Company Number: 172395USA

PATIENT
  Age: 44 Year
  Sex: Male

DRUGS (1)
  1. METFORMIN HYDROCHLORIDE [Suspect]
     Dosage: 500 MG ORAL
     Route: 048
     Dates: start: 20080519, end: 20080519

REACTIONS (6)
  - DRUG HYPERSENSITIVITY [None]
  - DYSPNOEA [None]
  - SHOCK [None]
  - SWOLLEN TONGUE [None]
  - SYNCOPE [None]
  - URTICARIA [None]
